FAERS Safety Report 7203481-3 (Version None)
Quarter: 2010Q4

REPORT INFORMATION
  Report Type: 
  Country: None (occurrence: None)
  Receive Date: 20101228
  Receipt Date: 20101228
  Transmission Date: 20110411
  Serious: Yes (Hospitalization)
  Sender: FDA-Public Use
  Company Number: None

PATIENT
  Sex: Female
  Weight: 77.5 kg

DRUGS (2)
  1. TAXOL [Suspect]
     Dosage: 148 MG
     Dates: end: 20100621
  2. HERCEPTIN [Suspect]
     Dosage: 169 MG
     Dates: end: 20100621

REACTIONS (3)
  - CHEST PAIN [None]
  - ELECTROCARDIOGRAM QT PROLONGED [None]
  - OEDEMA PERIPHERAL [None]
